FAERS Safety Report 5778772-3 (Version None)
Quarter: 2008Q2

REPORT INFORMATION
  Report Type: 
  Country: None (occurrence: None)
  Receive Date: 20080616
  Receipt Date: 20070604
  Transmission Date: 20081010
  Serious: Yes (Hospitalization, Other)
  Sender: FDA-Public Use
  Company Number: WAES 0706USA00559

PATIENT
  Age: 54 Year
  Sex: Female

DRUGS (2)
  1. COZAAR [Suspect]
     Dosage: 100 MG/DAILY/PO
     Route: 048
     Dates: start: 20060601
  2. TOPROL-XL [Concomitant]

REACTIONS (1)
  - OEDEMA PERIPHERAL [None]
